FAERS Safety Report 17115868 (Version 2)
Quarter: 2019Q4

REPORT INFORMATION
  Report Type: Spontaneous
  Country: DE (occurrence: DE)
  Receive Date: 20191205
  Receipt Date: 20191219
  Transmission Date: 20200122
  Serious: Yes (Hospitalization)
  Sender: FDA-Public Use
  Company Number: DE-TEVA-2019-DE-1146945

PATIENT
  Age: 31 Year
  Sex: Male
  Weight: 110 kg

DRUGS (5)
  1. MIRTAZAPINE. [Concomitant]
     Active Substance: MIRTAZAPINE
     Indication: SCHIZOAFFECTIVE DISORDER
     Route: 065
  2. LITHIUM. [Suspect]
     Active Substance: LITHIUM
     Indication: SCHIZOAFFECTIVE DISORDER
     Dosage: 900 MILLIGRAM DAILY;
     Route: 048
  3. CLOZAPINE. [Suspect]
     Active Substance: CLOZAPINE
     Indication: SCHIZOAFFECTIVE DISORDER
     Dosage: 100 MILLIGRAM DAILY;
     Route: 065
  4. VENLAFAXINE [Suspect]
     Active Substance: VENLAFAXINE HYDROCHLORIDE
     Indication: SCHIZOAFFECTIVE DISORDER
     Dosage: 150 MILLIGRAM DAILY;
     Route: 065
  5. AMISULPRIDE [Suspect]
     Active Substance: AMISULPRIDE
     Indication: SCHIZOAFFECTIVE DISORDER
     Route: 065

REACTIONS (12)
  - Myocarditis [Recovering/Resolving]
  - Cardiomegaly [Unknown]
  - Cardiac failure [Recovering/Resolving]
  - Mitral valve incompetence [Unknown]
  - Right ventricular dysfunction [Unknown]
  - Left ventricular dysfunction [Recovering/Resolving]
  - Pulmonary congestion [Unknown]
  - Electrocardiogram QT prolonged [Recovered/Resolved]
  - Extrapyramidal disorder [Unknown]
  - Pericardial effusion [Unknown]
  - Cardiomyopathy [Recovering/Resolving]
  - Pulmonary hypertension [Unknown]
